FAERS Safety Report 6440146-X (Version None)
Quarter: 2009Q4

REPORT INFORMATION
  Report Type: 
  Country: None (occurrence: None)
  Receive Date: 20091113
  Receipt Date: 20090309
  Transmission Date: 20100525
  Serious: No
  Sender: FDA-Public Use
  Company Number: A0772338A

PATIENT
  Age: 66 Year
  Sex: Female

DRUGS (6)
  1. COREG [Suspect]
     Indication: HYPERTENSION
     Dosage: 10MG PER DAY
     Route: 048
     Dates: start: 20090304
  2. METFORMIN HCL [Concomitant]
  3. ENALAPRIL [Concomitant]
  4. THYROID TAB [Concomitant]
  5. AMBIEN [Concomitant]
  6. PREDNISOLONE [Concomitant]
     Dates: end: 20090216

REACTIONS (3)
  - BLOOD GLUCOSE DECREASED [None]
  - DRUG INEFFECTIVE [None]
  - DYSPNOEA [None]
